FAERS Safety Report 21436820 (Version 1)
Quarter: 2022Q4

REPORT INFORMATION
  Report Type: Report from Study
  Country: US (occurrence: US)
  Receive Date: 20221010
  Receipt Date: 20221010
  Transmission Date: 20230113
  Serious: Yes (Hospitalization)
  Sender: FDA-Public Use
  Company Number: US-ABBVIE-22K-163-4275392-00

PATIENT
  Age: 65 Year
  Sex: Male
  Weight: 90.7 kg

DRUGS (6)
  1. HUMIRA [Suspect]
     Active Substance: ADALIMUMAB
     Indication: Rheumatoid arthritis
     Dosage: CITRATE FREE
     Route: 058
     Dates: start: 202112, end: 202201
  2. HUMIRA [Suspect]
     Active Substance: ADALIMUMAB
     Route: 058
     Dates: start: 2022
  3. PFIZER-BIONTECH COVID-19 VACCINE [Suspect]
     Active Substance: TOZINAMERAN
     Indication: COVID-19 immunisation
     Dosage: FIRST DOSE; FREQUENCY: ONE TIME ONCE
     Route: 030
     Dates: start: 20210217, end: 20210217
  4. PFIZER-BIONTECH COVID-19 VACCINE [Suspect]
     Active Substance: TOZINAMERAN
     Indication: COVID-19 immunisation
     Dosage: SECOND DOSE; FREQUENCY: ONE TIME ONCE
     Route: 030
     Dates: start: 20210310, end: 20210310
  5. PFIZER-BIONTECH COVID-19 VACCINE [Suspect]
     Active Substance: TOZINAMERAN
     Indication: COVID-19 immunisation
     Dosage: BOOSTER DOSE; FREQUENCY: ONE TIME ONCE
     Route: 030
     Dates: start: 202110, end: 202110
  6. MODERNA COVID-19 VACCINE [Suspect]
     Active Substance: ELASOMERAN
     Indication: COVID-19 immunisation
     Dosage: BOOSTER DOSE; FREQUENCY: ONE TIME ONCE
     Route: 030
     Dates: start: 20211227, end: 20211227

REACTIONS (10)
  - Post-acute COVID-19 syndrome [Recovering/Resolving]
  - Glycosylated haemoglobin increased [Unknown]
  - Glaucoma [Unknown]
  - Depression [Unknown]
  - Diabetes mellitus [Unknown]
  - Arthritis [Unknown]
  - Neuropathy peripheral [Unknown]
  - Asthma [Unknown]
  - Confusional state [Recovering/Resolving]
  - Hypertension [Unknown]

NARRATIVE: CASE EVENT DATE: 20220101
